FAERS Safety Report 19685422 (Version 2)
Quarter: 2021Q3

REPORT INFORMATION
  Report Type: Spontaneous
  Country: FR (occurrence: FR)
  Receive Date: 20210811
  Receipt Date: 20210819
  Transmission Date: 20211014
  Serious: Yes (Death)
  Sender: FDA-Public Use
  Company Number: FR-TEVA-2021-FR-1939495

PATIENT
  Age: 90 Year
  Sex: Male

DRUGS (10)
  1. ELIQUIS [Suspect]
     Active Substance: APIXABAN
     Indication: WRONG PATIENT
     Dosage: 5 MG
     Route: 048
     Dates: start: 20210707, end: 20210707
  2. LEVOTHYROX [Concomitant]
     Active Substance: LEVOTHYROXINE
  3. IRBESARTAN. [Concomitant]
     Active Substance: IRBESARTAN
  4. MACROGOL 4000 ARROW 10 G, POUDRE POUR SOLUTION BUVABLE EN SACHE [Concomitant]
  5. NEBIVOLOL. [Concomitant]
     Active Substance: NEBIVOLOL
  6. TAMSULOSINE [Suspect]
     Active Substance: TAMSULOSIN HYDROCHLORIDE
     Indication: WRONG PATIENT
     Dosage: 0.4 MG
     Route: 048
     Dates: start: 20210707, end: 20210707
  7. RAMIPRIL. [Suspect]
     Active Substance: RAMIPRIL
     Indication: WRONG PATIENT
     Dosage: 2.5 MG
     Route: 048
     Dates: start: 20210707, end: 20210707
  8. METFORMINE [Suspect]
     Active Substance: METFORMIN HYDROCHLORIDE
     Indication: WRONG PATIENT
     Dosage: 1 G
     Route: 048
     Dates: start: 20210707, end: 20210707
  9. XARELTO [Suspect]
     Active Substance: RIVAROXABAN
     Indication: ARRHYTHMIA
     Dosage: 10 MG
     Route: 048
     Dates: start: 20210707, end: 20210707
  10. LASILIX RETARD 60 MG, GELULE [Concomitant]
     Active Substance: FUROSEMIDE

REACTIONS (2)
  - Wrong patient received product [Recovered/Resolved]
  - Death [Fatal]

NARRATIVE: CASE EVENT DATE: 20210707
